FAERS Safety Report 5425073-9 (Version None)
Quarter: 2007Q3

REPORT INFORMATION
  Report Type: 
  Country: None (occurrence: None)
  Receive Date: 20070824
  Receipt Date: 20070816
  Transmission Date: 20080115
  Serious: Yes (Other)
  Sender: FDA-Public Use
  Company Number: US-JNJFOC-20050602776

PATIENT
  Sex: Female
  Weight: 57.15 kg

DRUGS (3)
  1. DURAGESIC-100 [Suspect]
     Indication: PAIN
     Route: 062
  2. ALEVE [Concomitant]
     Indication: PAIN
     Dosage: WHEN NECESSARY.
  3. ORUDIS [Concomitant]

REACTIONS (7)
  - BLINDNESS [None]
  - EATING DISORDER [None]
  - MUSCLE SPASMS [None]
  - NAUSEA [None]
  - STOMACH DISCOMFORT [None]
  - URINARY RETENTION [None]
  - VISUAL ACUITY REDUCED [None]
